FAERS Safety Report 21604638 (Version 1)
Quarter: 2022Q4

REPORT INFORMATION
  Report Type: Report from Study
  Country: DE (occurrence: DE)
  Receive Date: 20221116
  Receipt Date: 20221116
  Transmission Date: 20230112
  Serious: Yes (Hospitalization, Other)
  Sender: FDA-Public Use
  Company Number: None

PATIENT
  Sex: Female

DRUGS (14)
  1. METHOTREXATE [Suspect]
     Active Substance: METHOTREXATE
     Indication: Rheumatoid arthritis
     Dosage: 15 MG ROUTE OF ADMINISTRATION : UNKNOWN .THERAPY END DATE : ASKU
     Route: 065
     Dates: start: 20161129
  2. METHOTREXATE [Suspect]
     Active Substance: METHOTREXATE
     Dosage: 15 MG, ROUTE OF ADMINISTRATION : UNKNOWN .THERAPY END DATE : ASKU
     Route: 065
     Dates: start: 20171121
  3. METHOTREXATE [Suspect]
     Active Substance: METHOTREXATE
     Dosage: UNK, ROUTE OF ADMINISTRATION : UNKNOWN .THERAPY START AND END DATE : ASKU
  4. METHOTREXATE [Suspect]
     Active Substance: METHOTREXATE
     Dosage: 15 MG, ROUTE OF ADMINISTRATION : UNKNOWN .THERAPY END DATE : ASKU
     Route: 065
     Dates: start: 20160830
  5. METHOTREXATE [Suspect]
     Active Substance: METHOTREXATE
     Dosage: 15 MG, ROUTE OF ADMINISTRATION : UNKNOWN .THERAPY END DATE : ASKU
     Route: 065
     Dates: start: 20201116
  6. METHOTREXATE [Suspect]
     Active Substance: METHOTREXATE
     Dosage: 15 MG, ROUTE OF ADMINISTRATION : UNKNOWN .THERAPY END DATE : ASKU
     Route: 065
     Dates: start: 20211227
  7. METHOTREXATE [Suspect]
     Active Substance: METHOTREXATE
     Dosage: 15 MG, ROUTE OF ADMINISTRATION : UNKNOWN .THERAPY END DATE : ASKU
     Route: 065
     Dates: start: 20170523
  8. METHOTREXATE [Suspect]
     Active Substance: METHOTREXATE
     Dosage: 15 MG, ROUTE OF ADMINISTRATION : UNKNOWN .THERAPY END DATE : ASKU
     Route: 065
     Dates: start: 20181120
  9. METHOTREXATE [Suspect]
     Active Substance: METHOTREXATE
     Dosage: 15 MG, ROUTE OF ADMINISTRATION : UNKNOWN .THERAPY END DATE : ASKU
     Route: 065
     Dates: start: 20191001
  10. METHOTREXATE [Suspect]
     Active Substance: METHOTREXATE
     Dosage: 15 MG, ROUTE OF ADMINISTRATION : UNKNOWN .THERAPY END DATE : ASKU
     Route: 065
     Dates: start: 20190517
  11. METHOTREXATE [Suspect]
     Active Substance: METHOTREXATE
     Dosage: 15 MG, ROUTE OF ADMINISTRATION : UNKNOWN .THERAPY END DATE : ASKU
     Route: 065
     Dates: start: 20180423
  12. METHOTREXATE [Suspect]
     Active Substance: METHOTREXATE
     Dosage: 15 MG, ROUTE OF ADMINISTRATION : UNKNOWN .THERAPY END DATE : ASKU
     Route: 065
     Dates: start: 20200528
  13. METHOTREXATE [Suspect]
     Active Substance: METHOTREXATE
     Dosage: 15 MG, ROUTE OF ADMINISTRATION : UNKNOWN .THERAPY END DATE : ASKU
     Route: 065
     Dates: start: 20210426
  14. METHOTREXATE [Suspect]
     Active Substance: METHOTREXATE
     Dosage: 15 MG, ROUTE OF ADMINISTRATION : UNKNOWN .THERAPY END DATE : ASKU
     Route: 065
     Dates: start: 20160525

REACTIONS (20)
  - Intervertebral disc protrusion [Not Recovered/Not Resolved]
  - Rheumatoid arthritis [Recovered/Resolved]
  - Irritable bowel syndrome [Not Recovered/Not Resolved]
  - Fibromyalgia [Unknown]
  - Parathyroid tumour benign [Not Recovered/Not Resolved]
  - Rheumatoid arthritis [Recovered/Resolved]
  - Influenza like illness [Unknown]
  - Hyperparathyroidism primary [Unknown]
  - Urinary tract infection [Recovered/Resolved]
  - Stress urinary incontinence [Unknown]
  - Seasonal allergy [Unknown]
  - Pharyngitis [Recovered/Resolved]
  - Cough [Recovered/Resolved]
  - Sinusitis [Recovered/Resolved]
  - Tendon rupture [Not Recovered/Not Resolved]
  - Bronchitis [Recovered/Resolved]
  - Gastrointestinal infection [Recovered/Resolved]
  - Spondylolisthesis [Unknown]
  - Gastrointestinal infection [Recovered/Resolved]
  - Urinary tract infection [Unknown]

NARRATIVE: CASE EVENT DATE: 20171002
